FAERS Safety Report 9512259 (Version 1)
Quarter: 2013Q1

REPORT INFORMATION
  Report Type: Spontaneous
  Country: US (occurrence: None)
  Receive Date: 20130305
  Receipt Date: 20130305
  Transmission Date: 20140127
  Serious: Yes (Hospitalization)
  Sender: FDA-Public Use
  Company Number: 163-21880-12051606

PATIENT
  Age: 75 Year
  Sex: Male
  Weight: 100.25 kg

DRUGS (6)
  1. REVLIMID (LENALIDOMIDE) (CAPSULES) [Suspect]
     Indication: PLASMA CELL MYELOMA
     Route: 048
     Dates: start: 20110122
  2. ANTIVERT (MECLOZINE HYDROCHLORIDE) [Concomitant]
  3. ATENOLOL (ATENOLOL) [Concomitant]
  4. DOXYCYCLINE (DOXYCYCLINE) [Concomitant]
  5. OXYCODONE/APAP (OXYCODONE/APAP) [Concomitant]
  6. PHENERGAN (PROMETHAZINE HYDROCHLORIDE) [Concomitant]

REACTIONS (1)
  - Nocardiosis [None]
